FAERS Safety Report 22346383 (Version 1)
Quarter: 2023Q2

REPORT INFORMATION
  Report Type: Spontaneous
  Country: ES (occurrence: ES)
  Receive Date: 20230519
  Receipt Date: 20230519
  Transmission Date: 20230722
  Serious: Yes (Death, Life-Threatening, Hospitalization)
  Sender: FDA-Public Use
  Company Number: ES-GE HEALTHCARE-2023CSU003852

PATIENT
  Age: 63 Year
  Sex: Female

DRUGS (3)
  1. VISIPAQUE [Suspect]
     Active Substance: IODIXANOL
     Indication: Computerised tomogram thorax
     Dosage: 100 ML AT 3 ML/SEC, ONCE
     Route: 042
     Dates: start: 20230506, end: 20230506
  2. VISIPAQUE [Suspect]
     Active Substance: IODIXANOL
     Indication: Computerised tomogram abdomen
  3. VISIPAQUE [Suspect]
     Active Substance: IODIXANOL
     Indication: Lung neoplasm malignant

REACTIONS (11)
  - Cardio-respiratory arrest [Fatal]
  - Atrioventricular block complete [Not Recovered/Not Resolved]
  - Speech disorder [Not Recovered/Not Resolved]
  - Secretion discharge [Not Recovered/Not Resolved]
  - Contrast media allergy [Not Recovered/Not Resolved]
  - Hypoxia [Not Recovered/Not Resolved]
  - Depressed level of consciousness [Not Recovered/Not Resolved]
  - Cyanosis [Not Recovered/Not Resolved]
  - Bradycardia [Not Recovered/Not Resolved]
  - Feeling hot [Not Recovered/Not Resolved]
  - Cough [Not Recovered/Not Resolved]

NARRATIVE: CASE EVENT DATE: 20230506
